FAERS Safety Report 18507250 (Version 1)
Quarter: 2020Q4

REPORT INFORMATION
  Report Type: Spontaneous
  Country: US (occurrence: US)
  Receive Date: 20201116
  Receipt Date: 20201116
  Transmission Date: 20210114
  Serious: No
  Sender: FDA-Public Use
  Company Number: None

PATIENT
  Age: 33 Year
  Sex: Male
  Weight: 76.5 kg

DRUGS (2)
  1. DEXTROAMPHET SACCHARAT, AMPHET ASPARTATE, DEXTROAMPHET SULFATE AND AMPHET SULFAT [Suspect]
     Active Substance: AMPHETAMINE ASPARTATE\AMPHETAMINE SULFATE\DEXTROAMPHETAMINE SACCHARATE\DEXTROAMPHETAMINE SULFATE
     Indication: ATTENTION DEFICIT HYPERACTIVITY DISORDER
     Dosage: ?          QUANTITY:60 TABLET(S);?
     Route: 048
  2. BUPROPION XL [Concomitant]
     Active Substance: BUPROPION

REACTIONS (7)
  - Dry mouth [None]
  - Decreased appetite [None]
  - Disturbance in attention [None]
  - Insomnia [None]
  - Product quality issue [None]
  - Product formulation issue [None]
  - Drug ineffective [None]

NARRATIVE: CASE EVENT DATE: 20201114
